FAERS Safety Report 6957995-1 (Version None)
Quarter: 2010Q3

REPORT INFORMATION
  Report Type: 
  Country: None (occurrence: None)
  Receive Date: 20100830
  Receipt Date: 20100830
  Transmission Date: 20110219
  Serious: No
  Sender: FDA-Public Use
  Company Number: None

PATIENT
  Age: 34 Year
  Sex: Female
  Weight: 49.8957 kg

DRUGS (1)
  1. SUMATRIPTAN SUCCINATE [Suspect]
     Indication: MIGRAINE
     Dates: start: 20100601, end: 20100831

REACTIONS (4)
  - DRUG EFFECT DECREASED [None]
  - ECONOMIC PROBLEM [None]
  - PRODUCT SUBSTITUTION ISSUE [None]
  - UNEVALUABLE EVENT [None]
